FAERS Safety Report 12558363 (Version 2)
Quarter: 2016Q4

REPORT INFORMATION
  Report Type: Spontaneous
  Country: US (occurrence: US)
  Receive Date: 20160714
  Receipt Date: 20161017
  Transmission Date: 20170207
  Serious: No
  Sender: FDA-Public Use
  Company Number: US-GALDERMA-US16003892

PATIENT
  Age: 86 Year
  Sex: Female

DRUGS (7)
  1. LIDOCAINE PATCHES FROM SWEDEN [Concomitant]
     Route: 023
  2. TYLENOL [Concomitant]
     Active Substance: ACETAMINOPHEN
     Route: 048
  3. CANDESARTAN CILEXETIL 32MG [Concomitant]
     Indication: HYPERTENSION
     Dosage: 32 MG
     Route: 048
     Dates: start: 1995
  4. SOOLANTRA [Suspect]
     Active Substance: IVERMECTIN
     Dosage: 1%
     Route: 061
     Dates: start: 201602, end: 201602
  5. SOOLANTRA [Suspect]
     Active Substance: IVERMECTIN
     Indication: ROSACEA
     Dosage: 1%
     Route: 061
     Dates: start: 20160526, end: 20160531
  6. METROGEL [Suspect]
     Active Substance: METRONIDAZOLE
     Indication: ROSACEA
     Dosage: 1%
     Route: 061
     Dates: start: 2012
  7. Z BETA [Concomitant]
     Indication: HYPERTENSION
     Dosage: 7.5 MG
     Route: 048
     Dates: start: 1995

REACTIONS (7)
  - Dehydration [Recovered/Resolved]
  - Fatigue [Recovered/Resolved]
  - Mental fatigue [Recovered/Resolved]
  - Tremor [Recovered/Resolved]
  - Expired product administered [Recovered/Resolved]
  - Drug ineffective [Recovered/Resolved]
  - Muscle fatigue [Recovered/Resolved]

NARRATIVE: CASE EVENT DATE: 2012
